FAERS Safety Report 6025891-2 (Version None)
Quarter: 2008Q4

REPORT INFORMATION
  Report Type: 
  Country: None (occurrence: None)
  Receive Date: 20081224
  Receipt Date: 20081215
  Transmission Date: 20090506
  Serious: Yes (Hospitalization, Disabling)
  Sender: FDA-Public Use
  Company Number: WAES 0812USA03202

PATIENT
  Age: 10 Month
  Sex: Female
  Weight: 4.9896 kg

DRUGS (1)
  1. COZAAR [Suspect]
     Indication: MARFAN'S SYNDROME
     Dosage: 3 MG/DAILY/PO
     Route: 048
     Dates: start: 20081113, end: 20081211

REACTIONS (6)
  - CARDIAC FAILURE [None]
  - HEART RATE INCREASED [None]
  - MALAISE [None]
  - MITRAL VALVE INCOMPETENCE [None]
  - RESPIRATORY RATE INCREASED [None]
  - TACHYPNOEA [None]
